FAERS Safety Report 6228338-6 (Version None)
Quarter: 2009Q2

REPORT INFORMATION
  Report Type: 
  Country: None (occurrence: None)
  Receive Date: 20090612
  Receipt Date: 20090601
  Transmission Date: 20091009
  Serious: Yes (Hospitalization)
  Sender: FDA-Public Use
  Company Number: US-PFIZER INC-2009221332

PATIENT
  Sex: Female

DRUGS (7)
  1. XANAX [Suspect]
  2. IPILIMUMAB [Suspect]
     Indication: MALIGNANT MELANOMA
     Dosage: UNK
     Route: 042
     Dates: start: 20080903
  3. PAXIL [Concomitant]
  4. TAMOXIFEN [Concomitant]
  5. MONTELUKAST [Concomitant]
  6. FLOVENT [Concomitant]
  7. PREDNISONE [Concomitant]

REACTIONS (2)
  - MENTAL STATUS CHANGES [None]
  - OVERDOSE [None]
